FAERS Safety Report 4395527-5 (Version None)
Quarter: 2004Q3

REPORT INFORMATION
  Report Type: 
  Country: None (occurrence: None)
  Receive Date: 20040713
  Receipt Date: 20040706
  Transmission Date: 20050211
  Serious: Yes (Death, Hospitalization, Other)
  Sender: FDA-Public Use
  Company Number: DE-BRISTOL-MYERS SQUIBB COMPANY-12633368

PATIENT
  Age: 56 Year
  Sex: Female
  Weight: 37 kg

DRUGS (4)
  1. REYATAZ [Suspect]
     Indication: HIV INFECTION
     Dates: start: 20040515
  2. DIDANOSINE [Suspect]
     Indication: HIV INFECTION
     Dates: start: 20040515
  3. RITONAVIR [Suspect]
     Indication: HIV INFECTION
     Dates: start: 20040515
  4. TENOFOVIR [Suspect]
     Indication: HIV INFECTION
     Dates: start: 20040515

REACTIONS (5)
  - BLOOD BILIRUBIN INCREASED [None]
  - GENERAL PHYSICAL HEALTH DETERIORATION [None]
  - HAEMOGLOBIN DECREASED [None]
  - HEPATIC FAILURE [None]
  - HYPOGLYCAEMIA [None]
